FAERS Safety Report 23759863 (Version 2)
Quarter: 2024Q2

REPORT INFORMATION
  Report Type: Report from Study
  Country: CA (occurrence: CA)
  Receive Date: 20240419
  Receipt Date: 20240426
  Transmission Date: 20240716
  Serious: Yes (Death, Other)
  Sender: FDA-Public Use
  Company Number: CA-JAZZ PHARMACEUTICALS-2024-CA-006114

PATIENT

DRUGS (1)
  1. LURBINECTEDIN [Suspect]
     Active Substance: LURBINECTEDIN
     Indication: Small cell lung cancer extensive stage
     Dosage: UNK
     Dates: start: 20231121, end: 20231222

REACTIONS (1)
  - Death [Fatal]
